FAERS Safety Report 22162353 (Version 1)
Quarter: 2023Q1

REPORT INFORMATION
  Report Type: Spontaneous
  Country: US (occurrence: US)
  Receive Date: 20230331
  Receipt Date: 20230331
  Transmission Date: 20230418
  Serious: No
  Sender: FDA-Public Use
  Company Number: US-PFIZER INC-PV202300020317

PATIENT
  Age: 73 Year
  Sex: Male

DRUGS (3)
  1. XELJANZ [Suspect]
     Active Substance: TOFACITINIB CITRATE
     Indication: Rheumatoid arthritis
     Dosage: 5 MG (5 MG DAILY ALTERNATING WITH 5 MG EVERY 12 HOURS)
  2. XELJANZ [Suspect]
     Active Substance: TOFACITINIB CITRATE
     Dosage: 5 MG (5 MG DAILY ALTERNATING WITH 5 MG EVERY 12 HOURS)
  3. XELJANZ [Suspect]
     Active Substance: TOFACITINIB CITRATE
     Dosage: 5 MG ONCE EVERY OTHER DAY

REACTIONS (3)
  - Hepatic enzyme increased [Unknown]
  - Off label use [Unknown]
  - Intentional product misuse [Unknown]
